FAERS Safety Report 12833814 (Version 2)
Quarter: 2016Q4

REPORT INFORMATION
  Report Type: Spontaneous
  Country: BR (occurrence: BR)
  Receive Date: 20161010
  Receipt Date: 20161018
  Transmission Date: 20170207
  Serious: Yes (Other)
  Sender: FDA-Public Use
  Company Number: PHHY2016BR137324

PATIENT
  Sex: Male
  Weight: 50 kg

DRUGS (3)
  1. MIRTAZAPINE. [Suspect]
     Active Substance: MIRTAZAPINE
     Indication: NERVOUSNESS
     Dosage: 30 MG, QD
     Route: 048
     Dates: start: 20160930
  2. VITAMIN D [Concomitant]
     Active Substance: CHOLECALCIFEROL
     Indication: PRODUCT USED FOR UNKNOWN INDICATION
     Route: 065
  3. MIRTAZAPINE. [Suspect]
     Active Substance: MIRTAZAPINE
     Indication: EUPHORIC MOOD

REACTIONS (7)
  - Decreased appetite [Recovering/Resolving]
  - Somnolence [Recovering/Resolving]
  - Dysstasia [Recovering/Resolving]
  - Decreased interest [Recovering/Resolving]
  - Speech disorder [Recovering/Resolving]
  - Wrong technique in product usage process [Unknown]
  - Off label use [Unknown]
